FAERS Safety Report 18851756 (Version 1)
Quarter: 2021Q1

REPORT INFORMATION
  Report Type: Spontaneous
  Country: US (occurrence: US)
  Receive Date: 20210205
  Receipt Date: 20210205
  Transmission Date: 20210420
  Serious: No
  Sender: FDA-Public Use
  Company Number: None

PATIENT
  Age: 63 Year
  Sex: Female

DRUGS (3)
  1. AFINITOR [Suspect]
     Active Substance: EVEROLIMUS
     Indication: LUNG NEOPLASM MALIGNANT
     Route: 048
     Dates: start: 20200930, end: 20210118
  2. AFINITOR [Suspect]
     Active Substance: EVEROLIMUS
     Indication: GASTRIC CANCER
     Route: 048
     Dates: start: 20200930, end: 20210118
  3. N/A [Concomitant]
     Active Substance: UNSPECIFIED INGREDIENT

REACTIONS (4)
  - Decreased appetite [None]
  - Ageusia [None]
  - Pulmonary embolism [None]
  - Fatigue [None]

NARRATIVE: CASE EVENT DATE: 20210118
